FAERS Safety Report 23124703 (Version 3)
Quarter: 2023Q4

REPORT INFORMATION
  Report Type: Spontaneous
  Country: CA (occurrence: CA)
  Receive Date: 20231030
  Receipt Date: 20231220
  Transmission Date: 20240110
  Serious: Yes (Other)
  Sender: FDA-Public Use
  Company Number: CA-PFIZER INC-202300337431

PATIENT
  Age: 58 Year
  Sex: Female
  Weight: 70 kg

DRUGS (9)
  1. ABRILADA [Suspect]
     Active Substance: ADALIMUMAB-AFZB
     Indication: Rheumatoid arthritis
     Dosage: 40 MG, EVERY 2 WEEK
     Route: 058
     Dates: start: 20230722, end: 2023
  2. ABRILADA [Suspect]
     Active Substance: ADALIMUMAB-AFZB
     Dosage: 1 DF
     Route: 058
     Dates: start: 202307, end: 20231030
  3. ESTROGENS [Concomitant]
     Active Substance: ESTROGENS
     Dosage: UNK
  4. FLUOROMETHOLONE [Concomitant]
     Active Substance: FLUOROMETHOLONE
     Dosage: UNK
  5. HYDROXYCHLOROQUINE [Concomitant]
     Active Substance: HYDROXYCHLOROQUINE
     Dosage: UNK
  6. LEFLUNOMIDE [Concomitant]
     Active Substance: LEFLUNOMIDE
     Dosage: UNK
  7. MEDROL [Concomitant]
     Active Substance: METHYLPREDNISOLONE
     Dosage: UNK
     Dates: start: 2023, end: 2023
  8. METHYLPREDNISOLONE [Concomitant]
     Active Substance: METHYLPREDNISOLONE
     Dosage: UNK
  9. PROMETRIUM [Concomitant]
     Active Substance: PROGESTERONE
     Dosage: UNK

REACTIONS (8)
  - Sjogren^s syndrome [Unknown]
  - Drug ineffective [Unknown]
  - Sensitive skin [Not Recovered/Not Resolved]
  - Pruritus [Not Recovered/Not Resolved]
  - Sleep disorder due to general medical condition, insomnia type [Not Recovered/Not Resolved]
  - Nervous system disorder [Not Recovered/Not Resolved]
  - Dry mouth [Unknown]
  - Dry eye [Unknown]

NARRATIVE: CASE EVENT DATE: 20230101
